FAERS Safety Report 7222720-6 (Version None)
Quarter: 2011Q1

REPORT INFORMATION
  Report Type: 
  Country: None (occurrence: None)
  Receive Date: 20110112
  Receipt Date: 20101214
  Transmission Date: 20110831
  Serious: Yes (Death, Disabling, Other)
  Sender: FDA-Public Use
  Company Number: PHHY2010JP22679

PATIENT
  Sex: Female

DRUGS (8)
  1. CHLOR-TRIMETON [Concomitant]
     Dosage: UNK
     Route: 042
     Dates: start: 20080620
  2. LEPETAN [Concomitant]
     Dosage: UNK
     Route: 054
     Dates: start: 20080515, end: 20080523
  3. ZOLEDRONATE [Suspect]
     Indication: METASTASES TO BONE
     Dosage: 4MG (EVERY FOUR WEEKS)
     Route: 042
     Dates: start: 20080212, end: 20080523
  4. ZYPREXA [Concomitant]
     Dosage: 5 MG, UNK
     Route: 048
     Dates: start: 20080515, end: 20080523
  5. TRAVELMIN [Concomitant]
     Dosage: UNK
     Route: 048
     Dates: start: 20080515, end: 20080523
  6. VOLTAREN [Concomitant]
     Dosage: UNK
     Route: 054
     Dates: start: 20080521, end: 20080523
  7. MS ONSHIPPU [Concomitant]
     Dosage: UNK
     Dates: start: 20080520, end: 20080523
  8. BETAMETHASONE [Concomitant]
     Dosage: UNK
     Route: 042
     Dates: start: 20080620

REACTIONS (5)
  - PLEURAL EFFUSION [None]
  - BREAST CANCER METASTATIC [None]
  - TOOTH EXTRACTION [None]
  - RESPIRATORY FAILURE [None]
  - NEOPLASM MALIGNANT [None]
